FAERS Safety Report 8251012-1 (Version None)
Quarter: 2012Q2

REPORT INFORMATION
  Report Type: 
  Country: None (occurrence: None)
  Receive Date: 20120402
  Receipt Date: 20120327
  Transmission Date: 20120825
  Serious: No
  Sender: FDA-Public Use
  Company Number: US-PFIZER INC-2012079298

PATIENT
  Sex: Female
  Weight: 104 kg

DRUGS (5)
  1. LYRICA [Suspect]
     Indication: SJOGREN'S SYNDROME
     Dosage: 150 MG, DAILY
     Dates: start: 20110901, end: 20120101
  2. FOLIC ACID [Concomitant]
     Dosage: UNK, 2X/DAY
  3. GABAPENTIN [Suspect]
     Indication: SJOGREN'S SYNDROME
     Dosage: 300 MG, DAILY
     Dates: start: 20120101
  4. METHOTREXATE SODIUM [Suspect]
     Indication: SJOGREN'S SYNDROME
     Dosage: 2.5 MG, 2X/WEEK
  5. GABAPENTIN [Suspect]
     Indication: FIBROMYALGIA

REACTIONS (7)
  - WHITE BLOOD CELL COUNT DECREASED [None]
  - OEDEMA PERIPHERAL [None]
  - ARTHRALGIA [None]
  - JOINT SWELLING [None]
  - WEIGHT INCREASED [None]
  - RASH [None]
  - PAIN [None]
